FAERS Safety Report 16806409 (Version 1)
Quarter: 2019Q3

REPORT INFORMATION
  Report Type: Spontaneous
  Country: SE (occurrence: SE)
  Receive Date: 20190913
  Receipt Date: 20190913
  Transmission Date: 20191005
  Serious: Yes (Hospitalization)
  Sender: FDA-Public Use
  Company Number: SE-CANTON LABORATORIES, LLC-2074447

PATIENT
  Age: 64 Year
  Sex: Female

DRUGS (3)
  1. DALACIN [Concomitant]
     Active Substance: CLINDAMYCIN
     Route: 065
  2. NAPROSYN [Suspect]
     Active Substance: NAPROXEN
     Indication: MUSCULOSKELETAL PAIN
     Route: 065
     Dates: start: 2019
  3. FURIX (FUROSEMIDE) [Suspect]
     Active Substance: FUROSEMIDE
     Route: 065
     Dates: start: 201906, end: 201906

REACTIONS (1)
  - Prerenal failure [Unknown]

NARRATIVE: CASE EVENT DATE: 201906
